FAERS Safety Report 8364356-X (Version None)
Quarter: 2012Q2

REPORT INFORMATION
  Report Type: 
  Country: None (occurrence: None)
  Receive Date: 20120516
  Receipt Date: 20120510
  Transmission Date: 20120825
  Serious: Yes (Hospitalization)
  Sender: FDA-Public Use
  Company Number: US-BAYER-2011-074713

PATIENT
  Age: 37 Year
  Sex: Female
  Weight: 115.19 kg

DRUGS (14)
  1. YASMIN [Suspect]
     Indication: CONTRACEPTION
     Dosage: UNK
     Route: 048
     Dates: start: 20090505, end: 20090908
  2. ZOFRAN [Concomitant]
     Dosage: UNK
     Dates: start: 20090901
  3. GAS-X [Concomitant]
     Indication: ABDOMINAL DISTENSION
  4. MAALOX EXTRA STRENGTH [Concomitant]
     Indication: PAIN
     Dosage: 2 TABLESPOONS Q 8 H
  5. CARAFATE [Concomitant]
     Indication: PAIN
     Dosage: 10 ML, Q 6 H
  6. CARAFATE [Concomitant]
     Indication: ABDOMINAL DISTENSION
  7. DILAUDID [Concomitant]
     Indication: PAIN
     Dosage: UNK
     Dates: start: 20090901
  8. PROMETHAZINE [Concomitant]
     Indication: NAUSEA
  9. PRILOSEC [Concomitant]
     Dosage: UNK
     Dates: start: 20090814
  10. IBUPROFEN [Concomitant]
     Indication: PAIN
     Dosage: 800 MG, Q 8HS, PRN
  11. YASMIN [Suspect]
     Indication: PREMENSTRUAL SYNDROME
  12. IBUPROFEN [Concomitant]
     Indication: ABDOMINAL DISTENSION
  13. GAS-X [Concomitant]
     Indication: PAIN
     Dosage: 125 MG, Q 8HS, PRN
  14. MAALOX EXTRA STRENGTH [Concomitant]
     Indication: ABDOMINAL DISTENSION

REACTIONS (16)
  - POOR QUALITY SLEEP [None]
  - ABDOMINAL DISTENSION [None]
  - GRIEF REACTION [None]
  - DECUBITUS ULCER [None]
  - ANXIETY [None]
  - INJURY [None]
  - ANHEDONIA [None]
  - FATIGUE [None]
  - PORTAL VEIN THROMBOSIS [None]
  - ASTHENIA [None]
  - MESENTERIC VEIN THROMBOSIS [None]
  - SPLENIC VEIN THROMBOSIS [None]
  - PAIN [None]
  - DEPRESSED MOOD [None]
  - ABDOMINAL PAIN UPPER [None]
  - NAUSEA [None]
